FAERS Safety Report 21760815 (Version 3)
Quarter: 2023Q1

REPORT INFORMATION
  Report Type: Spontaneous
  Country: AU (occurrence: AU)
  Receive Date: 20221221
  Receipt Date: 20230217
  Transmission Date: 20230417
  Serious: Yes (Hospitalization)
  Sender: FDA-Public Use
  Company Number: AU-MYLANLABS-2022M1143259

PATIENT
  Age: 42 Year
  Sex: Male

DRUGS (2)
  1. CLOZARIL [Suspect]
     Active Substance: CLOZAPINE
     Indication: Schizophrenia
     Dosage: 350 MILLIGRAM
     Route: 048
     Dates: start: 20100428
  2. CLOZARIL [Suspect]
     Active Substance: CLOZAPINE
     Dosage: 300 MILLIGRAM
     Route: 048
     Dates: start: 20100428

REACTIONS (5)
  - Hospitalisation [Recovered/Resolved]
  - Antipsychotic drug level increased [Unknown]
  - Troponin increased [Unknown]
  - Oxygen saturation decreased [Recovering/Resolving]
  - Dyspnoea [Unknown]

NARRATIVE: CASE EVENT DATE: 20220501
